FAERS Safety Report 13594606 (Version 3)
Quarter: 2017Q2

REPORT INFORMATION
  Report Type: Spontaneous
  Country: IT (occurrence: IT)
  Receive Date: 20170530
  Receipt Date: 20170626
  Transmission Date: 20170830
  Serious: Yes (Death, Other)
  Sender: FDA-Public Use
  Company Number: IT-TEVA-768156ACC

PATIENT
  Age: 41 Year
  Sex: Male

DRUGS (2)
  1. GEMCITABINE [Suspect]
     Active Substance: GEMCITABINE\GEMCITABINE HYDROCHLORIDE
     Indication: GASTROENTEROPANCREATIC NEUROENDOCRINE TUMOUR DISEASE
     Dosage: 8 CYCLES
     Route: 042
  2. OXALIPLATIN. [Suspect]
     Active Substance: OXALIPLATIN
     Indication: GASTROENTEROPANCREATIC NEUROENDOCRINE TUMOUR DISEASE
     Dosage: 8 CYCLES
     Route: 042

REACTIONS (1)
  - Neurotoxicity [Unknown]
